FAERS Safety Report 21983609 (Version 3)
Quarter: 2023Q4

REPORT INFORMATION
  Report Type: Spontaneous
  Country: JP (occurrence: JP)
  Receive Date: 20230213
  Receipt Date: 20231024
  Transmission Date: 20240110
  Serious: Yes (Other)
  Sender: FDA-Public Use
  Company Number: JP-BRISTOL-MYERS SQUIBB COMPANY-2023-020213

PATIENT
  Age: 62 Year
  Weight: 55.3 kg

DRUGS (4)
  1. YERVOY [Suspect]
     Active Substance: IPILIMUMAB
     Indication: Non-small cell lung cancer
     Route: 041
     Dates: start: 20221020, end: 20230113
  2. OPDIVO [Suspect]
     Active Substance: NIVOLUMAB
     Indication: Non-small cell lung cancer
     Route: 041
     Dates: start: 20221020, end: 20230113
  3. AMLODIPINE BESYLATE [Concomitant]
     Active Substance: AMLODIPINE BESYLATE
     Indication: Hypertension
     Dosage: AFTER THE BREAKFAST
     Route: 048
     Dates: start: 20221209
  4. OLMESARTAN MEDOXOMIL [Concomitant]
     Active Substance: OLMESARTAN MEDOXOMIL
     Indication: Hypertension
     Dosage: AFTER THE BREAKFAST
     Route: 048
     Dates: start: 20221216

REACTIONS (3)
  - Liver disorder [Recovering/Resolving]
  - Rash [Recovering/Resolving]
  - Radiation pneumonitis [Unknown]

NARRATIVE: CASE EVENT DATE: 20230203
